FAERS Safety Report 6627148-5 (Version None)
Quarter: 2010Q1

REPORT INFORMATION
  Report Type: 
  Country: None (occurrence: None)
  Receive Date: 20100311
  Receipt Date: 20091026
  Transmission Date: 20100710
  Serious: No
  Sender: FDA-Public Use
  Company Number: A0813310A

PATIENT
  Age: 46 Year
  Sex: Female

DRUGS (2)
  1. NICOTINE POLACRILEX [Suspect]
     Dates: start: 20091022, end: 20091022
  2. NICODERM CQ [Suspect]
     Dates: start: 20091001, end: 20091018

REACTIONS (3)
  - ABNORMAL DREAMS [None]
  - NIGHTMARE [None]
  - TOOTHACHE [None]
